FAERS Safety Report 5394905-5 (Version None)
Quarter: 2007Q3

REPORT INFORMATION
  Report Type: 
  Country: None (occurrence: None)
  Receive Date: 20070723
  Receipt Date: 20070717
  Transmission Date: 20080115
  Serious: Yes (Congenital Anomaly, Other)
  Sender: FDA-Public Use
  Company Number: US-ABBOTT-07P-163-0375281-00

PATIENT
  Age: 1 Day

DRUGS (1)
  1. ADALIMUMAB [Suspect]
     Indication: DRUG EXPOSURE DURING PREGNANCY
     Route: 064

REACTIONS (2)
  - HIP DYSPLASIA [None]
  - PREMATURE BABY [None]
